FAERS Safety Report 17281542 (Version 1)
Quarter: 2020Q1

REPORT INFORMATION
  Report Type: Spontaneous
  Country: US (occurrence: US)
  Receive Date: 20191227
  Receipt Date: 20191227
  Transmission Date: 20200409
  Serious: Yes (Hospitalization)
  Sender: FDA-Public Use
  Company Number: None

PATIENT
  Age: 66 Year
  Sex: Male
  Weight: 100.7 kg

DRUGS (1)
  1. LITHIUM (LITHIUM CARBONATE 300MG TAB) [Suspect]
     Active Substance: LITHIUM CARBONATE
     Indication: BIPOLAR I DISORDER
     Dates: start: 20081029, end: 20110414

REACTIONS (9)
  - Treatment noncompliance [None]
  - Road traffic accident [None]
  - Delirium [None]
  - Dizziness [None]
  - Somnolence [None]
  - Behaviour disorder [None]
  - Anxiety [None]
  - Confusional state [None]
  - Akathisia [None]

NARRATIVE: CASE EVENT DATE: 20110421
